FAERS Safety Report 19049595 (Version 1)
Quarter: 2021Q1

REPORT INFORMATION
  Report Type: Spontaneous
  Country: US (occurrence: US)
  Receive Date: 20210323
  Receipt Date: 20210323
  Transmission Date: 20210420
  Serious: No
  Sender: FDA-Public Use
  Company Number: US-GALDERMA-US2021001863

PATIENT
  Age: 20 Year
  Sex: Female

DRUGS (5)
  1. PROACTIV MD DAILY OIL CONTROL SPF 30 [Suspect]
     Active Substance: AVOBENZONE\OCTISALATE\OCTOCRYLENE
     Indication: ACNE CYSTIC
     Route: 061
     Dates: start: 20201109, end: 20201214
  2. PROACTIV DEEP CLEANSING WASH [Concomitant]
     Active Substance: SALICYLIC ACID
     Indication: ACNE CYSTIC
     Route: 061
     Dates: start: 20201109, end: 20201214
  3. PROACTIV MD ADAPALENE ACNE TREATMENT [Suspect]
     Active Substance: ADAPALENE
     Indication: ACNE CYSTIC
     Dosage: 0.1%
     Route: 061
     Dates: start: 20201109, end: 20201214
  4. PROACTIV REDNESS RELIEF SERUM [Concomitant]
     Indication: ACNE CYSTIC
     Route: 061
     Dates: start: 20201109, end: 20201214
  5. PROACTIV MD DEEP CLEANSING FACE WASH [Concomitant]
     Active Substance: COSMETICS
     Indication: ACNE CYSTIC
     Route: 061
     Dates: start: 20201109, end: 20201214

REACTIONS (3)
  - Hypersensitivity [Recovered/Resolved]
  - Pruritus [Recovered/Resolved]
  - Rash macular [Recovered/Resolved]

NARRATIVE: CASE EVENT DATE: 20201116
